FAERS Safety Report 21566151 (Version 1)
Quarter: 2022Q4

REPORT INFORMATION
  Report Type: Spontaneous
  Country: US (occurrence: US)
  Receive Date: 20221108
  Receipt Date: 20221108
  Transmission Date: 20230112
  Serious: No
  Sender: FDA-Public Use
  Company Number: US-NOVOPROD-876199

PATIENT
  Age: 26 Year
  Sex: Female

DRUGS (1)
  1. FIASP [Suspect]
     Active Substance: INSULIN ASPART
     Indication: Product used for unknown indication
     Dosage: 20 TO 30 UNITS PER DAY
     Route: 058
     Dates: start: 2017

REACTIONS (4)
  - Skin reaction [Unknown]
  - Urticaria [Unknown]
  - Skin mass [Unknown]
  - Skin irritation [Unknown]

NARRATIVE: CASE EVENT DATE: 20211125
